FAERS Safety Report 23952017 (Version 1)
Quarter: 2024Q2

REPORT INFORMATION
  Report Type: Spontaneous
  Country: US (occurrence: US)
  Receive Date: 20240607
  Receipt Date: 20240607
  Transmission Date: 20240715
  Serious: Yes (Hospitalization, Other)
  Sender: FDA-Public Use
  Company Number: US-BRISTOL-MYERS SQUIBB COMPANY-2024-091506

PATIENT
  Age: 79 Year
  Sex: Male

DRUGS (2)
  1. OPDIVO [Suspect]
     Active Substance: NIVOLUMAB
     Indication: Lung neoplasm malignant
     Dosage: DOSE : OPDIVO: 360 MG; FREQ : OPDIVO: EVERY 3 WEEKS?STRENGTH: OPDIVO - 240, 120 MG; VIALS
     Route: 042
     Dates: end: 20240326
  2. YERVOY [Suspect]
     Active Substance: IPILIMUMAB
     Indication: Lung neoplasm malignant
     Dosage: YERVOY: 85 MG;     ?YERVOY: EVERY 6 WEEKS
     Route: 042
     Dates: end: 20240326

REACTIONS (1)
  - Malignant neoplasm progression [Unknown]
